FAERS Safety Report 6151527-6 (Version None)
Quarter: 2009Q2

REPORT INFORMATION
  Report Type: 
  Country: None (occurrence: None)
  Receive Date: 20090410
  Receipt Date: 20090331
  Transmission Date: 20091009
  Serious: Yes (Other)
  Sender: FDA-Public Use
  Company Number: US-ROCHE-616656

PATIENT
  Age: 76 Year
  Sex: Female

DRUGS (5)
  1. BONIVA [Suspect]
     Indication: OSTEOPOROSIS
     Route: 048
     Dates: start: 20080716, end: 20090101
  2. CALCITONIN [Suspect]
     Indication: OSTEOPOROSIS
     Dosage: 1 SPRAY DAILY
     Route: 045
     Dates: start: 20080716
  3. LASIX [Concomitant]
     Indication: OEDEMA
     Dates: start: 20090204
  4. POTASSIUM CHLORIDE [Concomitant]
  5. FLECTOR [Concomitant]

REACTIONS (2)
  - PITTING OEDEMA [None]
  - WEIGHT INCREASED [None]
